FAERS Safety Report 17324846 (Version 9)
Quarter: 2021Q1

REPORT INFORMATION
  Report Type: Spontaneous
  Country: US (occurrence: US)
  Receive Date: 20200127
  Receipt Date: 20210310
  Transmission Date: 20210419
  Serious: Yes (Hospitalization, Other)
  Sender: FDA-Public Use
  Company Number: US-SHIRE-US202002082

PATIENT
  Age: 45 Year
  Sex: Female

DRUGS (6)
  1. NATPARA (PARATHYROID HORMONE) [Suspect]
     Active Substance: PARATHYROID HORMONE
     Indication: PRODUCT USED FOR UNKNOWN INDICATION
     Dosage: 50 MICROGRAM, 1X/DAY:QD
     Route: 058
     Dates: start: 20190905
  2. NATPARA (PARATHYROID HORMONE) [Suspect]
     Active Substance: PARATHYROID HORMONE
     Indication: PRODUCT USED FOR UNKNOWN INDICATION
     Dosage: 50 MICROGRAM, 1X/DAY:QD
     Route: 058
     Dates: start: 20190905
  3. NATPARA (PARATHYROID HORMONE) [Suspect]
     Active Substance: PARATHYROID HORMONE
     Dosage: UNK
     Route: 058
     Dates: start: 202001
  4. NATPARA (PARATHYROID HORMONE) [Suspect]
     Active Substance: PARATHYROID HORMONE
     Dosage: UNK
     Route: 058
     Dates: start: 202001
  5. NATPARA (PARATHYROID HORMONE) [Suspect]
     Active Substance: PARATHYROID HORMONE
     Indication: PRODUCT USED FOR UNKNOWN INDICATION
     Dosage: 50 MICROGRAM, 1X/DAY:QD
     Route: 058
     Dates: start: 20190905
  6. NATPARA (PARATHYROID HORMONE) [Suspect]
     Active Substance: PARATHYROID HORMONE
     Dosage: UNK
     Route: 058
     Dates: start: 202001

REACTIONS (13)
  - Cardiac failure congestive [Recovered/Resolved]
  - COVID-19 [Recovering/Resolving]
  - Product dose omission issue [Unknown]
  - Product distribution issue [Unknown]
  - Transient ischaemic attack [Recovering/Resolving]
  - Hypoaesthesia [Unknown]
  - Blood magnesium decreased [Unknown]
  - Cardiac septal defect [Unknown]
  - Heart rate increased [Recovering/Resolving]
  - Anxiety [Recovering/Resolving]
  - Gastroenteritis viral [Unknown]
  - Recalled product [Unknown]
  - Blood potassium decreased [Unknown]

NARRATIVE: CASE EVENT DATE: 201909
